FAERS Safety Report 4960884-5 (Version None)
Quarter: 2006Q1

REPORT INFORMATION
  Report Type: 
  Country: None (occurrence: None)
  Receive Date: 20060328
  Receipt Date: 20060315
  Transmission Date: 20060701
  Serious: Yes (Hospitalization)
  Sender: FDA-Public Use
  Company Number: 2006021734

PATIENT
  Age: 44 Year
  Sex: Female
  Weight: 88 kg

DRUGS (14)
  1. LYRICA [Suspect]
     Indication: PAIN
     Dosage: 150 MG (75 MG, 2 IN 1 D), ORAL
     Route: 048
     Dates: start: 20051227, end: 20051230
  2. ALL OTHER THERAPEUTIC PRODUCTS (ALL OTHER THERAPEUTIC PRODUCTS) [Concomitant]
  3. IBUPROFEN [Concomitant]
  4. PANTOPRAZOLE SODIUM [Concomitant]
  5. METOPROLOL (METOPROLOL) [Concomitant]
  6. RAMIPRIL [Concomitant]
  7. PLAVIX [Concomitant]
  8. ISOSORBIDE DINITRATE [Concomitant]
  9. ACETYLSALICYLIC ACID SRT [Concomitant]
  10. ALL OTHER THERAPEUTIC PRODUCTS (ALL OTHER THERAPEUTIC PRODUCTS) [Concomitant]
  11. AMLODIPINE [Concomitant]
  12. MOLSIDOMINE (MOLSIDOMINE) [Concomitant]
  13. INSULIN (INSULIN) [Concomitant]
  14. LANTUS [Concomitant]

REACTIONS (2)
  - ANGINA PECTORIS [None]
  - HYPERTENSIVE CRISIS [None]
